FAERS Safety Report 6551559-X (Version None)
Quarter: 2010Q1

REPORT INFORMATION
  Report Type: 
  Country: None (occurrence: None)
  Receive Date: 20100126
  Receipt Date: 20100122
  Transmission Date: 20100710
  Serious: Yes (Death)
  Sender: FDA-Public Use
  Company Number: PHHO2009CN06440

PATIENT
  Sex: Male
  Weight: 58 kg

DRUGS (2)
  1. AFINITOR [Suspect]
     Indication: NEOPLASM
     Dosage: 10 MG, QD
     Route: 048
     Dates: start: 20090409
  2. HYDROCHLOROTHIAZIDE [Concomitant]
     Indication: OEDEMA

REACTIONS (7)
  - CEREBROVASCULAR ACCIDENT [None]
  - DISEASE PROGRESSION [None]
  - DRUG INEFFECTIVE [None]
  - DYSPNOEA [None]
  - FACIAL PALSY [None]
  - FATIGUE [None]
  - MUSCLE DISORDER [None]
